FAERS Safety Report 23129226 (Version 1)
Quarter: 2023Q4

REPORT INFORMATION
  Report Type: Spontaneous
  Country: US (occurrence: None)
  Receive Date: 20231031
  Receipt Date: 20231031
  Transmission Date: 20240110
  Serious: Yes (Hospitalization)
  Sender: FDA-Public Use
  Company Number: None

PATIENT
  Sex: Female
  Weight: 24 kg

DRUGS (2)
  1. DACTINOMYCIN [Suspect]
     Active Substance: DACTINOMYCIN
  2. VINCRISTINE [Suspect]
     Active Substance: VINCRISTINE

REACTIONS (7)
  - Pyrexia [None]
  - Hypophagia [None]
  - Tachycardia [None]
  - Anaemia [None]
  - Aspartate aminotransferase increased [None]
  - Alanine aminotransferase increased [None]
  - Thrombocytopenia [None]

NARRATIVE: CASE EVENT DATE: 20231028
